FAERS Safety Report 17883603 (Version 1)
Quarter: 2020Q2

REPORT INFORMATION
  Report Type: Spontaneous
  Country: PT (occurrence: PT)
  Receive Date: 20200611
  Receipt Date: 20200611
  Transmission Date: 20200714
  Serious: Yes (Death, Life-Threatening, Hospitalization, Other)
  Sender: FDA-Public Use
  Company Number: PT-HIKMA PHARMACEUTICALS USA INC.-PT-H14001-20-51484

PATIENT
  Age: 76 Year
  Sex: Female

DRUGS (3)
  1. DOCETAXEL. [Suspect]
     Active Substance: DOCETAXEL
     Indication: INVASIVE DUCTAL BREAST CARCINOMA
     Route: 065
  2. CARBOPLATIN. [Suspect]
     Active Substance: CARBOPLATIN
     Indication: INVASIVE DUCTAL BREAST CARCINOMA
     Route: 065
  3. TRASTUZUMAB. [Suspect]
     Active Substance: TRASTUZUMAB
     Indication: INVASIVE DUCTAL BREAST CARCINOMA
     Route: 065

REACTIONS (14)
  - Hypotension [Recovered/Resolved]
  - Cardio-respiratory arrest [Recovered/Resolved]
  - Intestinal ischaemia [Fatal]
  - Condition aggravated [Fatal]
  - Pleural effusion [Fatal]
  - Portal venous gas [Fatal]
  - Clostridium bacteraemia [Fatal]
  - Pneumoretroperitoneum [Fatal]
  - Acute kidney injury [Not Recovered/Not Resolved]
  - Stomatitis [Unknown]
  - Generalised tonic-clonic seizure [Recovered/Resolved]
  - Sepsis [Fatal]
  - Febrile neutropenia [Fatal]
  - Metabolic acidosis [Not Recovered/Not Resolved]
